FAERS Safety Report 16258183 (Version 3)
Quarter: 2019Q4

REPORT INFORMATION
  Report Type: Spontaneous
  Country: US (occurrence: US)
  Receive Date: 20190430
  Receipt Date: 20191203
  Transmission Date: 20200122
  Serious: Yes (Other)
  Sender: FDA-Public Use
  Company Number: US-ASTRAZENECA-2019SE09862

PATIENT
  Age: 21872 Day
  Sex: Female
  Weight: 83.9 kg

DRUGS (25)
  1. ASPIRIN. [Concomitant]
     Active Substance: ASPIRIN
  2. NITROGLYCERIN. [Concomitant]
     Active Substance: NITROGLYCERIN
  3. LANSOPRAZOLE. [Concomitant]
     Active Substance: LANSOPRAZOLE
  4. HYDROCODONE [Concomitant]
     Active Substance: HYDROCODONE
  5. LIDOCAINE. [Concomitant]
     Active Substance: LIDOCAINE
  6. ALBUTEROL SULFATE. [Concomitant]
     Active Substance: ALBUTEROL SULFATE
  7. ACETAMINOPHEN. [Concomitant]
     Active Substance: ACETAMINOPHEN
  8. DIAZEPAM. [Concomitant]
     Active Substance: DIAZEPAM
  9. LISINOPRIL. [Concomitant]
     Active Substance: LISINOPRIL
  10. MIDAZOLAM [Concomitant]
     Active Substance: MIDAZOLAM HYDROCHLORIDE
  11. CLOPIDOGREL [Concomitant]
     Active Substance: CLOPIDOGREL BISULFATE
  12. VERAPAMIL [Concomitant]
     Active Substance: VERAPAMIL HYDROCHLORIDE
  13. CARVEDILOL. [Concomitant]
     Active Substance: CARVEDILOL
  14. NEXIUM [Suspect]
     Active Substance: ESOMEPRAZOLE MAGNESIUM
     Route: 048
  15. PRILOSEC [Suspect]
     Active Substance: OMEPRAZOLE MAGNESIUM
     Route: 048
  16. PENICILLINS [Concomitant]
     Active Substance: PENICILLIN
  17. OXYMETAZOLINE [Concomitant]
     Active Substance: OXYMETAZOLINE
  18. AMLODIPINE [Concomitant]
     Active Substance: AMLODIPINE BESYLATE
  19. FLOVENT [Concomitant]
     Active Substance: FLUTICASONE PROPIONATE
  20. ATORVASTATIN [Concomitant]
     Active Substance: ATORVASTATIN
  21. PRILOSEC [Suspect]
     Active Substance: OMEPRAZOLE MAGNESIUM
     Dosage: OMEPRAZOLE
     Route: 048
  22. DIAMOX SEQUELS [Concomitant]
     Active Substance: ACETAZOLAMIDE
  23. OXYCONTIN [Concomitant]
     Active Substance: OXYCODONE HYDROCHLORIDE
  24. ADENOSINE. [Concomitant]
     Active Substance: ADENOSINE
  25. PANTOPRAZOLE [Concomitant]
     Active Substance: PANTOPRAZOLE
     Dosage: 40MG/L

REACTIONS (5)
  - Acute kidney injury [Unknown]
  - Rebound acid hypersecretion [Unknown]
  - Chronic kidney disease [Unknown]
  - Renal failure [Unknown]
  - Renal injury [Unknown]

NARRATIVE: CASE EVENT DATE: 20150806
